FAERS Safety Report 5711571-7 (Version None)
Quarter: 2008Q2

REPORT INFORMATION
  Report Type: 
  Country: None (occurrence: None)
  Receive Date: 20080416
  Receipt Date: 20080402
  Transmission Date: 20081010
  Serious: Yes (Death)
  Sender: FDA-Public Use
  Company Number: GB-DEXPHARM-20080293

PATIENT
  Age: 91 Year
  Sex: Female

DRUGS (2)
  1. OMEPRAZOLE [Suspect]
     Dosage: 20 MG MILLIGRAM(S)
  2. GAVISCON [Suspect]

REACTIONS (2)
  - CARDIAC FAILURE [None]
  - DRUG INTERACTION [None]
